FAERS Safety Report 5481739-6 (Version None)
Quarter: 2007Q4

REPORT INFORMATION
  Report Type: 
  Country: None (occurrence: None)
  Receive Date: 20071010
  Receipt Date: 20070928
  Transmission Date: 20080405
  Serious: Yes (Hospitalization)
  Sender: FDA-Public Use
  Company Number: US-SHR-US-2007-007125

PATIENT
  Age: 40 Year
  Sex: Male
  Weight: 95.5 kg

DRUGS (14)
  1. BETAFERON [Suspect]
     Indication: RELAPSING-REMITTING MULTIPLE SCLEROSIS
     Dosage: .25 ML, EVERY 2D
     Route: 058
     Dates: start: 20040615, end: 20040627
  2. BETAFERON [Suspect]
     Dosage: .5 ML, EVERY 2D
     Route: 058
     Dates: start: 20040629, end: 20040719
  3. BETAFERON [Suspect]
     Dosage: .75 ML, EVERY 2D
     Route: 058
     Dates: start: 20040721, end: 20040801
  4. BETAFERON [Suspect]
     Dosage: 1 ML, EVERY 2D
     Route: 058
     Dates: start: 20040803, end: 20070221
  5. BETAFERON [Suspect]
     Dosage: 1 ML, EVERY 2D
     Route: 058
     Dates: start: 20070313, end: 20070429
  6. GABAPENTIN [Concomitant]
     Indication: DYSAESTHESIA
     Dosage: 300 MG, 3X/DAY
     Route: 048
     Dates: start: 20040218, end: 20040606
  7. GABAPENTIN [Concomitant]
     Dosage: 300 MG, 2X/DAY
     Route: 048
     Dates: start: 20040703, end: 20050201
  8. IBUPROFEN [Concomitant]
     Indication: HEADACHE
     Dosage: 400 MG, AS REQ'D
     Route: 048
     Dates: start: 20040615
  9. VIAGRA [Concomitant]
     Dosage: 50 MG, AS REQ'D
     Route: 048
     Dates: start: 20050101, end: 20050101
  10. LEXAPRO [Concomitant]
     Indication: IRRITABILITY
     Dosage: 20 MG, 1X/DAY
     Route: 048
     Dates: start: 20050822, end: 20051001
  11. METHYLPREDNISOLONE [Concomitant]
     Indication: MULTIPLE SCLEROSIS RELAPSE
     Dosage: 1 G, 1X/DAY
     Route: 042
     Dates: start: 20070205, end: 20070205
  12. METHYLPREDNISOLONE [Concomitant]
     Dosage: 1 G, 1X/DAY
     Route: 042
     Dates: start: 20070207, end: 20070209
  13. METHYLPREDNISOLONE [Concomitant]
     Dosage: 1 G, 1X/DAY
     Route: 042
     Dates: start: 20070212, end: 20070212
  14. ASCORBIC ACID [Concomitant]
     Indication: VITAMIN SUPPLEMENTATION
     Dosage: 1000 MG, 1X/DAY
     Route: 048
     Dates: start: 20061115

REACTIONS (3)
  - CARDIAC FAILURE CONGESTIVE [None]
  - CARDIOMYOPATHY [None]
  - PULMONARY OEDEMA [None]
